FAERS Safety Report 4738288-X (Version None)
Quarter: 2005Q3

REPORT INFORMATION
  Report Type: 
  Country: None (occurrence: None)
  Receive Date: 20050803
  Receipt Date: 20050725
  Transmission Date: 20060218
  Serious: Yes (Other)
  Sender: FDA-Public Use
  Company Number: GBWYE856525JUL05

PATIENT
  Age: 27 Year
  Sex: Male

DRUGS (6)
  1. ANADIN IBUPROFEN (IBUPROFEN) [Suspect]
  2. CODEINE SUL TAB [Suspect]
  3. ETHANOL               (ETHANOL) [Suspect]
  4. PAROXETINE HCL [Suspect]
     Dosage: 20-50MG
     Dates: start: 19990901, end: 20021201
  5. COCAINE       (COCAINE) [Concomitant]
  6. METHYLENEDIOXYAMPHETAMINE         (METHYLENEDIOXYAMPHETAMINE) [Concomitant]

REACTIONS (9)
  - AGGRESSION [None]
  - ALCOHOL INTERACTION [None]
  - DRUG ABUSER [None]
  - DRUG INTERACTION [None]
  - INTENTIONAL MISUSE [None]
  - OVERDOSE [None]
  - SEXUAL DYSFUNCTION [None]
  - SMOKER [None]
  - SOCIAL PHOBIA [None]
